FAERS Safety Report 21446455 (Version 1)
Quarter: 2022Q4

REPORT INFORMATION
  Report Type: Spontaneous
  Country: US (occurrence: US)
  Receive Date: 20221012
  Receipt Date: 20221012
  Transmission Date: 20230113
  Serious: No
  Sender: FDA-Public Use
  Company Number: US-SA-2022SA411090

PATIENT
  Age: 60 Year
  Sex: Male

DRUGS (15)
  1. FABRAZYME [Suspect]
     Active Substance: AGALSIDASE BETA
     Dosage: 60 MG, QOW
     Route: 042
     Dates: start: 20211108
  2. BENADRYL ALLERGY [Concomitant]
     Active Substance: DIPHENHYDRAMINE HYDROCHLORIDE
     Dosage: UNK
  3. EPINEPHRINE [Concomitant]
     Active Substance: EPINEPHRINE
     Dosage: UNK
  4. SODIUM BICARBONATE [Concomitant]
     Active Substance: SODIUM BICARBONATE
     Dosage: UNK
  5. ACETAMINOPHEN [Concomitant]
     Active Substance: ACETAMINOPHEN
     Dosage: UNK
  6. STERILE WATER [Concomitant]
     Active Substance: WATER
     Dosage: UNK
  7. LOKELMA [Concomitant]
     Active Substance: SODIUM ZIRCONIUM CYCLOSILICATE
     Dosage: UNK
  8. VITAMIN D3 [Concomitant]
     Active Substance: CHOLECALCIFEROL
     Dosage: UNK
  9. SOLU-MEDROL [Concomitant]
     Active Substance: METHYLPREDNISOLONE SODIUM SUCCINATE
     Dosage: UNK
  10. ALLOPURINOL [Concomitant]
     Active Substance: ALLOPURINOL
     Dosage: UNK
  11. ENALAPRIL MALEATE [Concomitant]
     Active Substance: ENALAPRIL MALEATE
     Dosage: UNK
  12. ARANESP [Concomitant]
     Active Substance: DARBEPOETIN ALFA
     Dosage: UNK
  13. SODIUM CHLORIDE [Concomitant]
     Active Substance: SODIUM CHLORIDE
     Dosage: UNK
  14. VITAMIN B [Concomitant]
     Active Substance: VITAMIN B
     Dosage: UNK
  15. SODIUM CHLORIDE [Concomitant]
     Active Substance: SODIUM CHLORIDE

REACTIONS (1)
  - Exposure to SARS-CoV-2 [Unknown]

NARRATIVE: CASE EVENT DATE: 20220901
